FAERS Safety Report 8867323 (Version 1)
Quarter: 2012Q4

REPORT INFORMATION
  Report Type: 
  Country: US (occurrence: US)
  Receive Date: 20121025
  Receipt Date: 20121025
  Transmission Date: 20130627
  Serious: No
  Sender: FDA-Public Use
  Company Number: US-AMGEN-USASP2012015965

PATIENT
  Age: 33 Year
  Sex: Female

DRUGS (3)
  1. ENBREL [Suspect]
     Indication: PRODUCT USED FOR UNKNOWN INDICATION
     Dosage: 50 mg, 2 times/wk
     Route: 058
  2. VITAMIN D /00107901/ [Concomitant]
     Dosage: UNK
  3. VITAMIN B12                        /00056201/ [Concomitant]
     Dosage: 1 mg, UNK

REACTIONS (2)
  - Headache [Not Recovered/Not Resolved]
  - Acne [Not Recovered/Not Resolved]
